FAERS Safety Report 21964667 (Version 1)
Quarter: 2023Q1

REPORT INFORMATION
  Report Type: Spontaneous
  Country: US (occurrence: US)
  Receive Date: 20230207
  Receipt Date: 20230207
  Transmission Date: 20230418
  Serious: No
  Sender: FDA-Public Use
  Company Number: US-PURDUE PHARMA-USA-2022-0298884

PATIENT
  Age: 42 Year
  Sex: Male
  Weight: 115.67 kg

DRUGS (2)
  1. BUTRANS [Suspect]
     Active Substance: BUPRENORPHINE
     Indication: Pain
     Dosage: 5 MCG/HR, WEEKLY
     Route: 003
     Dates: start: 20221129
  2. BUTRANS [Suspect]
     Active Substance: BUPRENORPHINE
     Dosage: 10 MCG/HR, WEEKLY
     Route: 003
     Dates: start: 20221226

REACTIONS (10)
  - Application site wound [Unknown]
  - Application site scab [Unknown]
  - Application site pain [Unknown]
  - Application site irritation [Recovered/Resolved]
  - Condition aggravated [Unknown]
  - Application site pruritus [Unknown]
  - Application site erythema [Unknown]
  - Application site pruritus [Recovered/Resolved]
  - Application site erythema [Recovered/Resolved]
  - Product adhesion issue [Unknown]

NARRATIVE: CASE EVENT DATE: 20221206
